FAERS Safety Report 11717371 (Version 2)
Quarter: 2015Q4

REPORT INFORMATION
  Report Type: Report from Study
  Country: TR (occurrence: TR)
  Receive Date: 20151110
  Receipt Date: 20151119
  Transmission Date: 20160304
  Serious: Yes (Other)
  Sender: FDA-Public Use
  Company Number: TR-ROCHE-1656647

PATIENT

DRUGS (2)
  1. BEVACIZUMAB [Suspect]
     Active Substance: BEVACIZUMAB
     Indication: NEOVASCULAR AGE-RELATED MACULAR DEGENERATION
     Route: 050
  2. RANIBIZUMAB [Suspect]
     Active Substance: RANIBIZUMAB
     Indication: NEOVASCULAR AGE-RELATED MACULAR DEGENERATION
     Route: 050

REACTIONS (8)
  - Endophthalmitis [Unknown]
  - Eye disorder [Unknown]
  - Cataract [Unknown]
  - Intraocular pressure increased [Unknown]
  - Myocardial infarction [Unknown]
  - Retinal pigment epithelial tear [Unknown]
  - Cerebrovascular accident [Unknown]
  - Hypertension [Unknown]
